FAERS Safety Report 7940180-4 (Version None)
Quarter: 2011Q4

REPORT INFORMATION
  Report Type: 
  Country: None (occurrence: None)
  Receive Date: 20111125
  Receipt Date: 20091028
  Transmission Date: 20120403
  Serious: Yes (Other)
  Sender: FDA-Public Use
  Company Number: PHHY2009JP070235

PATIENT
  Age: 35 Year
  Sex: Male

DRUGS (1)
  1. CYCLOSPORINE [Suspect]
     Indication: BEHCET'S SYNDROME
     Dosage: 3-5 MG/KG DAILY

REACTIONS (4)
  - UVEITIS [None]
  - DRUG RESISTANCE [None]
  - NEUROLOGICAL SYMPTOM [None]
  - NEPHROPATHY TOXIC [None]
